FAERS Safety Report 7425019-8 (Version None)
Quarter: 2011Q2

REPORT INFORMATION
  Report Type: 
  Country: None (occurrence: None)
  Receive Date: 20110419
  Receipt Date: 20110406
  Transmission Date: 20111010
  Serious: Yes (Other)
  Sender: FDA-Public Use
  Company Number: GB-MYLANLABS-2011S1007297

PATIENT
  Age: 24 Year
  Sex: Male
  Weight: 88.9 kg

DRUGS (4)
  1. LORAZEPAM [Concomitant]
     Indication: ANXIETY
     Route: 048
     Dates: start: 20070622, end: 20100430
  2. LORAZEPAM [Concomitant]
     Dates: start: 20100430
  3. CITALOPRAM HYDROBROMIDE [Suspect]
     Dates: end: 20090120
  4. CITALOPRAM HYDROBROMIDE [Suspect]
     Indication: OBSESSIVE-COMPULSIVE DISORDER
     Dates: start: 20081227

REACTIONS (7)
  - SEXUAL DYSFUNCTION [None]
  - ORGASMIC SENSATION DECREASED [None]
  - DEPRESSION [None]
  - LIBIDO DECREASED [None]
  - HEADACHE [None]
  - DEPRESSED MOOD [None]
  - PREMATURE EJACULATION [None]
